FAERS Safety Report 7100086-X (Version None)
Quarter: 2010Q4

REPORT INFORMATION
  Report Type: 
  Country: None (occurrence: None)
  Receive Date: 20101112
  Receipt Date: 20091027
  Transmission Date: 20110411
  Serious: No
  Sender: FDA-Public Use
  Company Number: A0813623A

PATIENT
  Age: 75 Year
  Sex: Female

DRUGS (11)
  1. CARVEDILOL [Suspect]
     Indication: CARDIAC OPERATION
     Dosage: 6.25MG TWICE PER DAY
     Route: 048
     Dates: start: 20091016
  2. CYMBALTA [Concomitant]
  3. SPIRONOLACTONE [Concomitant]
  4. FUROSEMIDE [Concomitant]
  5. PRILOSEC [Concomitant]
  6. VITAMIN E [Concomitant]
  7. ASPIRIN [Concomitant]
  8. CENTRUM SILVER [Concomitant]
  9. VITAMIN B-12 [Concomitant]
  10. MULTI-VITAMIN [Concomitant]
  11. ASCORBIC ACID [Concomitant]

REACTIONS (6)
  - DIARRHOEA [None]
  - EYE PRURITUS [None]
  - HEADACHE [None]
  - NAUSEA [None]
  - PRURITUS GENERALISED [None]
  - VOMITING [None]
